FAERS Safety Report 7678798-9 (Version None)
Quarter: 2011Q3

REPORT INFORMATION
  Report Type: 
  Country: None (occurrence: None)
  Receive Date: 20110811
  Receipt Date: 20110801
  Transmission Date: 20111222
  Serious: Yes (Other)
  Sender: FDA-Public Use
  Company Number: US-BAXTER-2011BH025250

PATIENT
  Age: 74 Year
  Sex: Male

DRUGS (2)
  1. ATROPINE SULFATE [Suspect]
     Indication: CARDIAC STRESS TEST
     Route: 042
  2. DOBUTAMINE HCL [Suspect]
     Indication: CARDIAC STRESS TEST
     Route: 042

REACTIONS (1)
  - TRANSIENT ISCHAEMIC ATTACK [None]
